FAERS Safety Report 7641257-3 (Version None)
Quarter: 2011Q3

REPORT INFORMATION
  Report Type: 
  Country: None (occurrence: None)
  Receive Date: 20110728
  Receipt Date: 20110720
  Transmission Date: 20111222
  Serious: Yes (Hospitalization)
  Sender: FDA-Public Use
  Company Number: US-JNJFOC-20110708780

PATIENT
  Sex: Female
  Weight: 79.38 kg

DRUGS (2)
  1. LORTAB [Concomitant]
     Indication: PAIN
     Dosage: 10/500 MG TABLET THREE TIMES A DAY AS NEEDED
     Route: 048
  2. DURAGESIC-100 [Suspect]
     Indication: PAIN
     Route: 062
     Dates: start: 20100101

REACTIONS (7)
  - MENOPAUSE [None]
  - INAPPROPRIATE SCHEDULE OF DRUG ADMINISTRATION [None]
  - PRODUCT QUALITY ISSUE [None]
  - POST PROCEDURAL INFECTION [None]
  - DEHYDRATION [None]
  - PAIN [None]
  - WRONG TECHNIQUE IN DRUG USAGE PROCESS [None]
